FAERS Safety Report 8839744 (Version 3)
Quarter: 2013Q1

REPORT INFORMATION
  Report Type: Spontaneous
  Country: DE (occurrence: None)
  Receive Date: 20121011
  Receipt Date: 20130226
  Transmission Date: 20140127
  Serious: Yes (Hospitalization)
  Sender: FDA-Public Use
  Company Number: 2012-529

PATIENT
  Age: 44 Year
  Sex: Female
  Weight: 68 kg

DRUGS (2)
  1. PRIALT [Suspect]
     Indication: PAIN
     Dosage: 0.92 MCG, ONCE/HOUR, INTRATHECAL
     Route: 037
  2. MORPHINE HYDROCHLORIDE [Suspect]
     Indication: PAIN

REACTIONS (4)
  - Eating disorder [None]
  - Weight decreased [None]
  - Drug withdrawal syndrome [None]
  - Migraine [None]
